FAERS Safety Report 5321831-X (Version None)
Quarter: 2007Q2

REPORT INFORMATION
  Report Type: 
  Country: None (occurrence: None)
  Receive Date: 20070510
  Receipt Date: 20070510
  Transmission Date: 20071010
  Serious: Yes (Death)
  Sender: FDA-Public Use
  Company Number: DE-BRISTOL-MYERS SQUIBB COMPANY-13774518

PATIENT
  Sex: Female

DRUGS (2)
  1. NACOM 100 RETARD [Suspect]
  2. CARBIDOPA + LEVODOPA [Suspect]

REACTIONS (1)
  - DEATH [None]
